FAERS Safety Report 4387622-1 (Version None)
Quarter: 2004Q2

REPORT INFORMATION
  Report Type: 
  Country: None (occurrence: None)
  Receive Date: 20040630
  Receipt Date: 20040520
  Transmission Date: 20050107
  Serious: No
  Sender: FDA-Public Use
  Company Number: US-GLAXOSMITHKLINE-A0511610A

PATIENT
  Age: 75 Year
  Sex: Female

DRUGS (7)
  1. ADVAIR HFA [Suspect]
     Dosage: 1PUFF TWICE PER DAY
     Route: 055
     Dates: start: 20040413, end: 20040428
  2. SYNTHROID [Concomitant]
  3. PREDNISONE [Concomitant]
  4. ACTONEL [Concomitant]
  5. ALLOPURINOL [Concomitant]
  6. ACCUPRIL [Concomitant]
  7. ATENOLOL [Concomitant]

REACTIONS (2)
  - COUGH [None]
  - LARYNGITIS [None]
